FAERS Safety Report 21959288 (Version 1)
Quarter: 2023Q1

REPORT INFORMATION
  Report Type: Spontaneous
  Country: CO (occurrence: CO)
  Receive Date: 20230206
  Receipt Date: 20230206
  Transmission Date: 20230417
  Serious: Yes (Hospitalization)
  Sender: FDA-Public Use
  Company Number: CO-BIOMARINAP-CO-2023-148383

PATIENT

DRUGS (1)
  1. VIMIZIM [Suspect]
     Active Substance: ELOSULFASE ALFA
     Indication: Mucopolysaccharidosis IV
     Dosage: 30 MILLIGRAM, QW
     Route: 042
     Dates: start: 20150316

REACTIONS (6)
  - Respiratory symptom [Recovering/Resolving]
  - Pneumonitis [Recovering/Resolving]
  - Pyrexia [Not Recovered/Not Resolved]
  - Oropharyngeal pain [Recovering/Resolving]
  - Productive cough [Not Recovered/Not Resolved]
  - Malaise [Recovering/Resolving]

NARRATIVE: CASE EVENT DATE: 20230126
